FAERS Safety Report 11403896 (Version 1)
Quarter: 2015Q3

REPORT INFORMATION
  Report Type: Spontaneous
  Country: US (occurrence: None)
  Receive Date: 20150820
  Receipt Date: 20150820
  Transmission Date: 20151125
  Serious: Yes (Disabling)
  Sender: FDA-Public Use
  Company Number: None

PATIENT
  Age: 24 Year
  Sex: Female
  Weight: 49.9 kg

DRUGS (6)
  1. LISINOPRIL. [Concomitant]
     Active Substance: LISINOPRIL
  2. VITAMIN D [Concomitant]
     Active Substance: CHOLECALCIFEROL
  3. CYCLOSPORINE. [Suspect]
     Active Substance: CYCLOSPORINE
     Indication: FOCAL SEGMENTAL GLOMERULOSCLEROSIS
     Dosage: TAKEN BY MOUTH
     Route: 048
     Dates: start: 20150618, end: 20150818
  4. PSYLLIUM [Concomitant]
     Active Substance: PLANTAGO SEED
  5. ZINC [Concomitant]
     Active Substance: ZINC\ZINC CHLORIDE
  6. CRAMBERRY CONCENTRATE [Concomitant]

REACTIONS (2)
  - Alopecia [None]
  - Hair texture abnormal [None]
